FAERS Safety Report 14897641 (Version 1)
Quarter: 2018Q2

REPORT INFORMATION
  Report Type: Report from Study
  Country: US (occurrence: US)
  Receive Date: 20180515
  Receipt Date: 20180515
  Transmission Date: 20180711
  Serious: Yes (Other)
  Sender: FDA-Public Use
  Company Number: US-SHIRE-US201818124

PATIENT
  Sex: Male

DRUGS (1)
  1. LIALDA [Suspect]
     Active Substance: MESALAMINE
     Indication: PRODUCT USED FOR UNKNOWN INDICATION
     Dosage: 1.2 MG, 4X/DAY:QID
     Route: 065

REACTIONS (4)
  - Condition aggravated [Unknown]
  - Haemorrhage [Unknown]
  - Drug dose omission [Unknown]
  - Drug ineffective [Unknown]
